FAERS Safety Report 6367701-X (Version None)
Quarter: 2009Q3

REPORT INFORMATION
  Report Type: 
  Country: None (occurrence: None)
  Receive Date: 20090921
  Receipt Date: 20090910
  Transmission Date: 20100115
  Serious: Yes (Hospitalization)
  Sender: FDA-Public Use
  Company Number: FR-GILEAD-2009-0024184

PATIENT
  Age: 43 Year
  Sex: Female

DRUGS (4)
  1. VIREAD [Suspect]
     Indication: DRUG USE FOR UNKNOWN INDICATION
  2. ISENTRESS [Concomitant]
  3. VIRAMUNE [Concomitant]
  4. GENTAMICINE [Concomitant]

REACTIONS (2)
  - HYPERCREATINAEMIA [None]
  - URINARY TRACT INFECTION [None]
